FAERS Safety Report 6710292-1 (Version None)
Quarter: 2010Q2

REPORT INFORMATION
  Report Type: 
  Country: None (occurrence: None)
  Receive Date: 20100430
  Receipt Date: 20100417
  Transmission Date: 20101027
  Serious: Yes (Other)
  Sender: FDA-Public Use
  Company Number: 2010AP000795

PATIENT
  Age: 48 Year
  Sex: Female

DRUGS (2)
  1. CARBAMAZEPINE [Suspect]
     Indication: SCHIZOAFFECTIVE DISORDER
  2. ARIPIPRAZOLE [Suspect]
     Indication: SCHIZOAFFECTIVE DISORDER
     Dosage: 45 ,G; QD, 30 MG; QD

REACTIONS (5)
  - AKATHISIA [None]
  - ANXIETY [None]
  - DRUG INTERACTION [None]
  - OVERDOSE [None]
  - TREMOR [None]
